FAERS Safety Report 4627738-5 (Version None)
Quarter: 2005Q2

REPORT INFORMATION
  Report Type: 
  Country: None (occurrence: None)
  Receive Date: 20050401
  Receipt Date: 20040902
  Transmission Date: 20051028
  Serious: No
  Sender: FDA-Public Use
  Company Number: 8825

PATIENT

DRUGS (1)
  1. LEUCOVORIN CALCIUM [Suspect]

REACTIONS (1)
  - CONVULSION [None]
